FAERS Safety Report 4634255-5 (Version None)
Quarter: 2005Q2

REPORT INFORMATION
  Report Type: 
  Country: None (occurrence: None)
  Receive Date: 20050413
  Receipt Date: 20050408
  Transmission Date: 20051028
  Serious: Yes (Life-Threatening, Hospitalization, Other)
  Sender: FDA-Public Use
  Company Number: PHNU2005DE01586

PATIENT
  Sex: Male

DRUGS (1)
  1. TEGRETOL [Suspect]
     Indication: BIPOLAR DISORDER
     Dosage: 400 MG, BID
     Route: 048
     Dates: start: 20030917

REACTIONS (6)
  - BRONCHIAL INFECTION [None]
  - ENDOCARDITIS BACTERIAL [None]
  - GASTROENTERITIS BACTERIAL [None]
  - IMMUNE SYSTEM DISORDER [None]
  - PAIN [None]
  - STREPTOCOCCAL INFECTION [None]
